FAERS Safety Report 12110903 (Version 1)
Quarter: 2016Q1

REPORT INFORMATION
  Report Type: Spontaneous
  Country: IT (occurrence: IT)
  Receive Date: 20160224
  Receipt Date: 20160224
  Transmission Date: 20160526
  Serious: Yes (Other)
  Sender: FDA-Public Use
  Company Number: IT-FRI-1000082773

PATIENT
  Age: 50 Year
  Sex: Female

DRUGS (4)
  1. NEBIVOLOL. [Suspect]
     Active Substance: NEBIVOLOL
     Indication: HYPERTENSION
     Dosage: 2.5 MG
     Route: 065
     Dates: start: 20160205, end: 20160208
  2. ZOPRAZIDE [Concomitant]
     Active Substance: HYDROCHLOROTHIAZIDE\ZOFENOPRIL CALCIUM
     Indication: HYPERTENSION
     Route: 048
  3. XATRAL [Concomitant]
     Active Substance: ALFUZOSIN
     Route: 048
     Dates: start: 20151130
  4. EUTIROX [Concomitant]
     Active Substance: LEVOTHYROXINE SODIUM
     Indication: THYROIDECTOMY
     Route: 048

REACTIONS (1)
  - Toxic skin eruption [Not Recovered/Not Resolved]

NARRATIVE: CASE EVENT DATE: 20160207
